FAERS Safety Report 6530582-5 (Version None)
Quarter: 2010Q1

REPORT INFORMATION
  Report Type: 
  Country: None (occurrence: None)
  Receive Date: 20100106
  Receipt Date: 20100106
  Transmission Date: 20100710
  Serious: No
  Sender: FDA-Public Use
  Company Number: None

PATIENT

DRUGS (1)
  1. BENZTROPINE MESYLATE [Suspect]
     Dosage: 2MG SINGLE-DOSE VIAL

REACTIONS (2)
  - MEDICATION ERROR [None]
  - PHYSICAL PRODUCT LABEL ISSUE [None]
